FAERS Safety Report 19781360 (Version 1)
Quarter: 2021Q3

REPORT INFORMATION
  Report Type: Spontaneous
  Country: US (occurrence: US)
  Receive Date: 20210902
  Receipt Date: 20210902
  Transmission Date: 20211014
  Serious: No
  Sender: FDA-Public Use
  Company Number: US-ALKERMES INC.-ALK-2021-004466

PATIENT
  Sex: Female
  Weight: 71.2 kg

DRUGS (4)
  1. VIVITROL [Suspect]
     Active Substance: NALTREXONE
     Dosage: 380 MILLIGRAM, QMO
     Route: 030
     Dates: start: 2017, end: 2017
  2. BUSPAR [Concomitant]
     Active Substance: BUSPIRONE HYDROCHLORIDE
     Indication: PRODUCT USED FOR UNKNOWN INDICATION
     Dosage: UNK
     Route: 065
  3. VIVITROL [Suspect]
     Active Substance: NALTREXONE
     Dosage: 380 MILLIGRAM, QMO
     Route: 030
     Dates: start: 202103, end: 202103
  4. VIVITROL [Suspect]
     Active Substance: NALTREXONE
     Indication: DRUG DEPENDENCE
     Dosage: 380 MILLIGRAM, QMO
     Route: 030
     Dates: start: 20210825

REACTIONS (9)
  - Feeling abnormal [Not Recovered/Not Resolved]
  - Abdominal discomfort [Recovering/Resolving]
  - Lack of administration site rotation [Not Recovered/Not Resolved]
  - Injection site pain [Unknown]
  - Headache [Recovering/Resolving]
  - Injection site haemorrhage [Recovered/Resolved]
  - Drug dependence [Unknown]
  - Dysgeusia [Recovering/Resolving]
  - Injection site reaction [Unknown]

NARRATIVE: CASE EVENT DATE: 2021
